FAERS Safety Report 7373635-4 (Version None)
Quarter: 2011Q1

REPORT INFORMATION
  Report Type: 
  Country: None (occurrence: None)
  Receive Date: 20110325
  Receipt Date: 20110228
  Transmission Date: 20110831
  Serious: Yes (Hospitalization, Other)
  Sender: FDA-Public Use
  Company Number: US-BAYER-201010673NA

PATIENT
  Sex: Female
  Weight: 59 kg

DRUGS (6)
  1. YASMIN [Suspect]
     Indication: ORAL CONTRACEPTION
     Dosage: 1 DF (DAILY DOSE), QD, ORAL
     Route: 048
     Dates: start: 20070909, end: 20071015
  2. ZANTAC [Concomitant]
     Dosage: UNK
     Dates: start: 20071001
  3. DARVOCET-N 100 [Concomitant]
     Dosage: UNK
     Dates: start: 20071001
  4. DARVOCET-N 100 [Concomitant]
  5. YASMIN [Suspect]
     Indication: MENOPAUSAL SYMPTOMS
  6. YAZ [Suspect]
     Indication: ACNE
     Dosage: UNK
     Dates: start: 20070919, end: 20071116

REACTIONS (6)
  - SWELLING [None]
  - PAIN [None]
  - PULMONARY INFARCTION [None]
  - CHEST PAIN [None]
  - HYPOAESTHESIA [None]
  - PULMONARY EMBOLISM [None]
